FAERS Safety Report 9771759 (Version 1)
Quarter: 2013Q4

REPORT INFORMATION
  Report Type: Spontaneous
  Country: CO (occurrence: CO)
  Receive Date: 20131219
  Receipt Date: 20131219
  Transmission Date: 20140711
  Serious: Yes (Hospitalization, Other)
  Sender: FDA-Public Use
  Company Number: CO-AMGEN-COLSP2013088832

PATIENT
  Age: 60 Year
  Sex: Female

DRUGS (6)
  1. ENBREL [Suspect]
     Indication: RHEUMATOID ARTHRITIS
     Dosage: 50 MG, WEEKLY
     Route: 058
     Dates: start: 2009
  2. CALCIUM + VIT D [Concomitant]
     Indication: OSTEOPOROSIS
     Dosage: 600 MG, DAILY
     Route: 048
  3. FLUOXETINE [Concomitant]
     Indication: DEPRESSION
     Dosage: UNK
  4. PREGABALIN [Concomitant]
     Indication: FIBROMYALGIA
     Dosage: 75 MG, DAILY
     Route: 048
  5. FOLIC ACID [Concomitant]
     Dosage: 1 MG, DAILY
     Route: 048
  6. ARAVA [Concomitant]
     Indication: RHEUMATOID ARTHRITIS
     Dosage: 20 MG, DAILY
     Route: 048

REACTIONS (4)
  - Fall [Recovering/Resolving]
  - Thoracic vertebral fracture [Recovering/Resolving]
  - Carpal tunnel syndrome [Recovered/Resolved]
  - Anaemia [Unknown]
